FAERS Safety Report 5484335-X (Version None)
Quarter: 2007Q4

REPORT INFORMATION
  Report Type: 
  Country: None (occurrence: None)
  Receive Date: 20071010
  Receipt Date: 20070926
  Transmission Date: 20080405
  Serious: Yes (Death)
  Sender: FDA-Public Use
  Company Number: 2007US002177

PATIENT
  Age: 56 Year
  Sex: Female

DRUGS (4)
  1. PROGRAF [Suspect]
     Indication: KIDNEY TRANSPLANT REJECTION
     Dosage: 1 MG, BID, ORAL
     Route: 048
  2. NEORAL [Concomitant]
  3. IMURAN [Concomitant]
  4. PREDNISONE TAB [Concomitant]

REACTIONS (1)
  - ACUTE MYOCARDIAL INFARCTION [None]
